FAERS Safety Report 5510778-1 (Version None)
Quarter: 2007Q4

REPORT INFORMATION
  Report Type: 
  Country: None (occurrence: None)
  Receive Date: 20071108
  Receipt Date: 20071102
  Transmission Date: 20080405
  Serious: Yes (Hospitalization)
  Sender: FDA-Public Use
  Company Number: B0494187A

PATIENT
  Age: 83 Year
  Sex: Female

DRUGS (20)
  1. ZELITREX [Suspect]
     Dosage: 500MG TWICE PER DAY
     Route: 048
     Dates: start: 20071002, end: 20071003
  2. VENTOLIN [Concomitant]
     Route: 065
  3. IMOVANE [Concomitant]
     Dosage: 705MG PER DAY
     Route: 048
     Dates: end: 20071003
  4. RENAGEL [Concomitant]
     Dosage: 4G PER DAY
  5. ELISOR [Concomitant]
     Dosage: 40MG PER DAY
     Route: 048
  6. RAMIPRIL [Concomitant]
     Dosage: 5MG PER DAY
     Route: 048
  7. AMLOR [Concomitant]
     Dosage: 5MG TWICE PER DAY
     Route: 048
  8. DETENSIEL [Concomitant]
  9. PLAVIX [Concomitant]
  10. PREVISCAN [Concomitant]
  11. LASIX [Concomitant]
  12. KAYEXALATE [Concomitant]
  13. OROCAL [Concomitant]
  14. MOTILIUM [Concomitant]
  15. FONZYLANE [Concomitant]
  16. SPECIAFOLDINE [Concomitant]
  17. EUPANTOL [Concomitant]
     Dosage: 1UNIT PER DAY
     Route: 048
  18. ACETAMINOPHEN [Concomitant]
  19. HEMODIALYSIS [Concomitant]
  20. CINACALCET HYDROCHLORIDE [Concomitant]

REACTIONS (6)
  - CONFUSIONAL STATE [None]
  - ENCEPHALOPATHY [None]
  - FALL [None]
  - HYPERKALAEMIA [None]
  - SOMNOLENCE [None]
  - SPEECH DISORDER [None]
